FAERS Safety Report 14492643 (Version 1)
Quarter: 2018Q1

REPORT INFORMATION
  Report Type: Spontaneous
  Country: US (occurrence: US)
  Receive Date: 20180206
  Receipt Date: 20180206
  Transmission Date: 20180509
  Serious: No
  Sender: FDA-Public Use
  Company Number: US-JNJFOC-20171237893

PATIENT
  Sex: Female

DRUGS (20)
  1. BENADRYL ALLERGY LIQUI-GELS [Suspect]
     Active Substance: DIPHENHYDRAMINE HYDROCHLORIDE
     Indication: RASH
     Route: 065
  2. ZYRTEC 10MG IR TABLET [Suspect]
     Active Substance: CETIRIZINE HYDROCHLORIDE
     Indication: PRURITUS
     Dosage: EVERYDAY (DAILY)
     Route: 065
  3. BENADRYL ALLERGY LIQUI-GELS [Suspect]
     Active Substance: DIPHENHYDRAMINE HYDROCHLORIDE
     Indication: PRURITUS
     Route: 065
  4. BENADRYL ALLERGY LIQUI-GELS [Suspect]
     Active Substance: DIPHENHYDRAMINE HYDROCHLORIDE
     Indication: THROAT TIGHTNESS
     Route: 065
  5. BENADRYL ALLERGY LIQUI-GELS [Suspect]
     Active Substance: DIPHENHYDRAMINE HYDROCHLORIDE
     Indication: THROAT TIGHTNESS
     Route: 065
  6. BENADRYL ALLERGY LIQUI-GELS [Suspect]
     Active Substance: DIPHENHYDRAMINE HYDROCHLORIDE
     Indication: DYSPNOEA
     Route: 065
  7. BENADRYL ALLERGY LIQUI-GELS [Suspect]
     Active Substance: DIPHENHYDRAMINE HYDROCHLORIDE
     Indication: MYCOTIC ALLERGY
     Route: 065
  8. BENADRYL ALLERGY LIQUI-GELS [Suspect]
     Active Substance: DIPHENHYDRAMINE HYDROCHLORIDE
     Indication: RASH
     Route: 065
  9. BENADRYL ALLERGY LIQUI-GELS [Suspect]
     Active Substance: DIPHENHYDRAMINE HYDROCHLORIDE
     Indication: MULTIPLE ALLERGIES
     Route: 065
  10. BENADRYL ALLERGY LIQUI-GELS [Suspect]
     Active Substance: DIPHENHYDRAMINE HYDROCHLORIDE
     Indication: HYPERSENSITIVITY
     Route: 065
  11. ZYRTEC 10MG IR TABLET [Suspect]
     Active Substance: CETIRIZINE HYDROCHLORIDE
     Indication: MULTIPLE ALLERGIES
     Dosage: EVERYDAY (DAILY)
     Route: 065
  12. BENADRYL ALLERGY LIQUI-GELS [Suspect]
     Active Substance: DIPHENHYDRAMINE HYDROCHLORIDE
     Indication: DYSPNOEA
     Route: 065
  13. BENADRYL ALLERGY LIQUI-GELS [Suspect]
     Active Substance: DIPHENHYDRAMINE HYDROCHLORIDE
     Indication: ALLERGY TO PLANTS
     Route: 065
  14. BENADRYL ALLERGY LIQUI-GELS [Suspect]
     Active Substance: DIPHENHYDRAMINE HYDROCHLORIDE
     Indication: MULTIPLE ALLERGIES
     Route: 065
  15. ZYRTEC 10MG IR TABLET [Suspect]
     Active Substance: CETIRIZINE HYDROCHLORIDE
     Indication: HYPERSENSITIVITY
     Dosage: EVERYDAY (DAILY)
     Route: 065
  16. BENADRYL ALLERGY LIQUI-GELS [Suspect]
     Active Substance: DIPHENHYDRAMINE HYDROCHLORIDE
     Indication: MYCOTIC ALLERGY
     Route: 065
  17. BENADRYL ALLERGY LIQUI-GELS [Suspect]
     Active Substance: DIPHENHYDRAMINE HYDROCHLORIDE
     Indication: HYPERSENSITIVITY
     Route: 065
  18. BENADRYL ALLERGY LIQUI-GELS [Suspect]
     Active Substance: DIPHENHYDRAMINE HYDROCHLORIDE
     Indication: PRURITUS
     Route: 065
  19. BENADRYL ALLERGY LIQUI-GELS [Suspect]
     Active Substance: DIPHENHYDRAMINE HYDROCHLORIDE
     Indication: ALLERGY TO PLANTS
     Route: 065
  20. AVEENO SKIN RELIEF MOIST REPAIR CREAM [Concomitant]
     Indication: PRODUCT USED FOR UNKNOWN INDICATION
     Route: 065

REACTIONS (4)
  - Therapeutic response unexpected [Unknown]
  - Product lot number issue [Unknown]
  - Product expiration date issue [Unknown]
  - Product use in unapproved indication [Unknown]
